FAERS Safety Report 15209317 (Version 1)
Quarter: 2018Q3

REPORT INFORMATION
  Report Type: Spontaneous
  Country: US (occurrence: US)
  Receive Date: 20180629
  Receipt Date: 20180629
  Transmission Date: 20181010
  Serious: Yes (Life-Threatening)
  Sender: FDA-Public Use
  Company Number: None

PATIENT
  Age: 23 Year
  Sex: Female
  Weight: 46.04 kg

DRUGS (2)
  1. WOMEN^S ONE A DAY [Concomitant]
     Active Substance: VITAMINS
  2. NEXPLANON [Suspect]
     Active Substance: ETONOGESTREL

REACTIONS (11)
  - Cold sweat [None]
  - Sleep disorder [None]
  - Muscle spasms [None]
  - Menstruation irregular [None]
  - Headache [None]
  - Anxiety [None]
  - Dyspnoea [None]
  - Dizziness [None]
  - Vision blurred [None]
  - Depression [None]
  - Fatigue [None]

NARRATIVE: CASE EVENT DATE: 20180615
